FAERS Safety Report 7403250-5 (Version None)
Quarter: 2011Q2

REPORT INFORMATION
  Report Type: 
  Country: None (occurrence: None)
  Receive Date: 20110408
  Receipt Date: 20110405
  Transmission Date: 20111010
  Serious: Yes (Hospitalization)
  Sender: FDA-Public Use
  Company Number: FR-ROCHE-769634

PATIENT
  Sex: Male

DRUGS (9)
  1. RIVOTRIL [Suspect]
     Route: 048
     Dates: start: 20110129, end: 20110131
  2. ZELITREX [Suspect]
     Indication: HERPES ZOSTER
     Route: 048
     Dates: start: 20110128, end: 20110131
  3. ARANESP [Concomitant]
  4. TAHOR [Concomitant]
  5. KARDEGIC [Concomitant]
  6. FORLAX [Concomitant]
  7. CORDARONE [Concomitant]
  8. EUPANTOL [Concomitant]
  9. CLINUTREN [Concomitant]

REACTIONS (2)
  - ENCEPHALOPATHY [None]
  - CONFUSIONAL STATE [None]
